FAERS Safety Report 7773823-9 (Version None)
Quarter: 2011Q3

REPORT INFORMATION
  Report Type: 
  Country: None (occurrence: None)
  Receive Date: 20110923
  Receipt Date: 20110914
  Transmission Date: 20111222
  Serious: Yes (Hospitalization)
  Sender: FDA-Public Use
  Company Number: DE-JNJFOC-20110204872

PATIENT
  Sex: Female
  Weight: 75 kg

DRUGS (8)
  1. PALIPERIDONE [Suspect]
     Indication: PSYCHOTIC DISORDER
     Route: 048
  2. ALLOPURINOL [Concomitant]
     Indication: HYPERURICAEMIA
     Dates: start: 20100730
  3. METHOTREXATE [Suspect]
     Indication: ILL-DEFINED DISORDER
  4. PALIPERIDONE [Suspect]
     Indication: SCHIZOPHRENIA
     Route: 030
     Dates: start: 20090424, end: 20100528
  5. ASPIRIN [Concomitant]
     Indication: HYPERTENSION
     Dates: start: 20100730
  6. ALENDRONIC ACID [Concomitant]
     Indication: OSTEOPOROSIS
     Dates: start: 20050510
  7. VERAPAMIL [Concomitant]
     Indication: HYPERTENSION
     Dates: start: 20050621
  8. DARIFENACIN [Concomitant]
     Indication: BLADDER DYSFUNCTION
     Dates: start: 20091009

REACTIONS (1)
  - LIVER DISORDER [None]
